FAERS Safety Report 5834045-1 (Version None)
Quarter: 2008Q3

REPORT INFORMATION
  Report Type: 
  Country: None (occurrence: None)
  Receive Date: 20080805
  Receipt Date: 20080725
  Transmission Date: 20090109
  Serious: Yes (Other)
  Sender: FDA-Public Use
  Company Number: US-ELI_LILLY_AND_COMPANY-US200807005244

PATIENT
  Sex: Male

DRUGS (7)
  1. FORTEO [Suspect]
     Indication: OSTEOPOROSIS
     Dates: start: 20070404
  2. LOTREL [Concomitant]
  3. SYNTHROID [Concomitant]
     Indication: HYPOTHYROIDISM
     Dosage: UNK, DAILY (1/D)
  4. PRILOSEC [Concomitant]
     Indication: OESOPHAGITIS
  5. SINGULAIR [Concomitant]
  6. TEGRETOL [Concomitant]
     Indication: CONVULSION
     Dosage: UNK, 3/D
  7. ASPIRIN [Concomitant]
     Dosage: UNK, AS NEEDED

REACTIONS (1)
  - PROSTATE CANCER [None]
